FAERS Safety Report 8160300-9 (Version None)
Quarter: 2012Q1

REPORT INFORMATION
  Report Type: 
  Country: None (occurrence: None)
  Receive Date: 20120223
  Receipt Date: 20120223
  Transmission Date: 20120608
  Serious: Yes (Life-Threatening)
  Sender: FDA-Public Use
  Company Number: None

PATIENT
  Age: 57 Year
  Sex: Female
  Weight: 90.718 kg

DRUGS (1)
  1. CELESTONE SOLUSPAN [Suspect]
     Indication: ALLERGIC SINUSITIS
     Dosage: QTY 3
     Dates: start: 20120210, end: 20120210

REACTIONS (4)
  - RESPIRATORY RATE INCREASED [None]
  - DYSPNOEA [None]
  - HEART RATE INCREASED [None]
  - DEHYDRATION [None]
